FAERS Safety Report 8778406 (Version 1)
Quarter: 2012Q4

REPORT INFORMATION
  Report Type: 
  Country: US (occurrence: US)
  Receive Date: 20120912
  Receipt Date: 20120912
  Transmission Date: 20130627
  Serious: No
  Sender: FDA-Public Use
  Company Number: US-ASTRAZENECA-2012SE65795

PATIENT
  Age: 79 Year
  Sex: Female
  Weight: 81.6 kg

DRUGS (10)
  1. SYMBICORT PMDI [Suspect]
     Indication: ASTHMA
     Dosage: 320 MCG, TWO PUFFS IN AM AND TWO PUFFS IN PM
     Route: 055
     Dates: start: 201208
  2. SYMBICORT PMDI [Suspect]
     Indication: ASTHMA
     Dosage: 160 MCG, ONE PUFF IN AM AND ONE PUFF IN PM
     Route: 055
     Dates: start: 201208
  3. LEVOTHYROXINE [Concomitant]
     Indication: THYROID DISORDER
     Dosage: DAILY
  4. VITAMINS [Concomitant]
     Indication: ROUTINE HEALTH MAINTENANCE
     Dosage: DAILY
  5. LIVALO [Concomitant]
     Indication: BLOOD CHOLESTEROL ABNORMAL
     Dosage: DAILY
  6. VENTOLYN [Concomitant]
     Indication: RESPIRATORY DISORDER
     Dosage: PRN
     Route: 055
  7. AMLYODOPINE [Concomitant]
     Indication: BLOOD PRESSURE ABNORMAL
  8. METOPROLOL [Concomitant]
     Indication: BLOOD PRESSURE ABNORMAL
     Route: 048
  9. NASAL SPRAY [Concomitant]
     Indication: ASTHMA
     Route: 045
  10. FLOVENT [Concomitant]

REACTIONS (4)
  - Dyspnoea [Not Recovered/Not Resolved]
  - Blood cholesterol increased [Unknown]
  - Blood pressure increased [Unknown]
  - Heart rate increased [Unknown]
